FAERS Safety Report 19399537 (Version 1)
Quarter: 2021Q2

REPORT INFORMATION
  Report Type: Spontaneous
  Country: CN (occurrence: CN)
  Receive Date: 20210610
  Receipt Date: 20210610
  Transmission Date: 20210717
  Serious: Yes (Hospitalization, Other)
  Sender: FDA-Public Use
  Company Number: CN-AMGEN-CHNSP2021084484

PATIENT
  Age: 79 Year
  Sex: Female
  Weight: 33 kg

DRUGS (2)
  1. IVABRADINE [Suspect]
     Active Substance: IVABRADINE
     Indication: CORONARY ARTERY DISEASE
     Dosage: 2.5 MILLIGRAM, BID
     Route: 048
     Dates: start: 20210202, end: 20210506
  2. BETALOC [METOPROLOL SUCCINATE] [Suspect]
     Active Substance: METOPROLOL SUCCINATE
     Indication: CORONARY ARTERY DISEASE
     Dosage: 47.5 MILLIGRAM, QD
     Route: 048
     Dates: start: 20210202, end: 20210506

REACTIONS (6)
  - Dyspnoea [Unknown]
  - Pleural effusion [Unknown]
  - Syncope [Unknown]
  - Atrial fibrillation [Unknown]
  - Productive cough [Unknown]
  - Arrhythmia [Unknown]

NARRATIVE: CASE EVENT DATE: 202104
